FAERS Safety Report 8212657-8 (Version None)
Quarter: 2012Q1

REPORT INFORMATION
  Report Type: 
  Country: None (occurrence: None)
  Receive Date: 20120315
  Receipt Date: 20120312
  Transmission Date: 20120608
  Serious: Yes (Other)
  Sender: FDA-Public Use
  Company Number: US-BAYER-2012-000102

PATIENT
  Sex: Female

DRUGS (3)
  1. YASMIN [Suspect]
     Dosage: UNK
     Dates: start: 20030901, end: 20100701
  2. YASMIN [Suspect]
     Dosage: UNK
     Dates: start: 20080701
  3. YAZ [Suspect]
     Dosage: UNK
     Dates: start: 20030901, end: 20100701

REACTIONS (4)
  - INJURY [None]
  - PAIN [None]
  - EMOTIONAL DISTRESS [None]
  - GALLBLADDER DISORDER [None]
